FAERS Safety Report 7870016 (Version 3)
Quarter: 2012Q4

REPORT INFORMATION
  Report Type: 
  Country: US (occurrence: US)
  Receive Date: 20110324
  Receipt Date: 20120905
  Transmission Date: 20130627
  Serious: Yes (Life-Threatening, Hospitalization)
  Sender: FDA-Public Use
  Company Number: US-BAYER-2011-023844

PATIENT
  Age: 33 Year
  Sex: Female
  Weight: 81.63 kg

DRUGS (3)
  1. OCELLA [Suspect]
     Indication: CONTRACEPTION
     Route: 048
  2. TORADOL [Concomitant]
  3. LORTAB [Concomitant]

REACTIONS (5)
  - Deep vein thrombosis [None]
  - Thrombosis [None]
  - Pain [None]
  - Injury [None]
  - General physical health deterioration [None]
